FAERS Safety Report 5977107-0 (Version None)
Quarter: 2008Q4

REPORT INFORMATION
  Report Type: 
  Country: None (occurrence: None)
  Receive Date: 20081203
  Receipt Date: 20081121
  Transmission Date: 20090506
  Serious: Yes (Death)
  Sender: FDA-Public Use
  Company Number: KR-CELGENEUS-090-CCAZA-08111229

PATIENT
  Sex: Male
  Weight: 75.1 kg

DRUGS (10)
  1. AZACITIDINE [Suspect]
     Indication: MYELODYSPLASTIC SYNDROME
     Route: 058
     Dates: start: 20080720, end: 20080726
  2. AZACITIDINE [Suspect]
     Route: 058
     Dates: start: 20080817, end: 20080823
  3. AZACITIDINE [Suspect]
     Route: 058
     Dates: start: 20080914, end: 20080920
  4. AZACITIDINE [Suspect]
     Route: 058
     Dates: start: 20081012, end: 20081018
  5. AMLODIPINE [Concomitant]
     Indication: DRUG USE FOR UNKNOWN INDICATION
     Route: 065
     Dates: start: 20080903, end: 20081106
  6. CALCIUM POLYCARBOPHIL [Concomitant]
     Indication: DRUG USE FOR UNKNOWN INDICATION
     Route: 065
     Dates: start: 20081011, end: 20081106
  7. ITRACONAZOLE [Concomitant]
     Indication: DRUG USE FOR UNKNOWN INDICATION
     Route: 065
     Dates: start: 20080819, end: 20081106
  8. SOLIFENACIN SUCCINATE [Concomitant]
     Indication: DRUG USE FOR UNKNOWN INDICATION
     Route: 065
     Dates: start: 20081015, end: 20081106
  9. PIROXICAM [Concomitant]
     Indication: DRUG USE FOR UNKNOWN INDICATION
     Route: 065
     Dates: start: 20081028, end: 20081106
  10. LEVOFLOXACIN [Concomitant]
     Indication: DRUG USE FOR UNKNOWN INDICATION
     Route: 065
     Dates: start: 20081011, end: 20081106

REACTIONS (4)
  - ACUTE MYOCARDIAL INFARCTION [None]
  - ARTHRALGIA [None]
  - MENTAL IMPAIRMENT [None]
  - PNEUMONIA [None]
